FAERS Safety Report 8333608 (Version 2)
Quarter: 2012Q4

REPORT INFORMATION
  Report Type: 
  Country: US (occurrence: US)
  Receive Date: 20120112
  Receipt Date: 20121120
  Transmission Date: 20130627
  Serious: Yes (Hospitalization)
  Sender: FDA-Public Use
  Company Number: US-GENZYME-CERZ-1002356

PATIENT

DRUGS (2)
  1. CEREZYME [Suspect]
     Indication: GAUCHER^S DISEASE
     Dosage: 166 U, qw
     Route: 042
     Dates: start: 20051115
  2. CEREZYME [Suspect]
     Dosage: 2000 U, qw
     Route: 042

REACTIONS (1)
  - Device component issue [Recovered/Resolved]
